FAERS Safety Report 6956046-2 (Version None)
Quarter: 2010Q3

REPORT INFORMATION
  Report Type: 
  Country: None (occurrence: None)
  Receive Date: 20100830
  Receipt Date: 20100819
  Transmission Date: 20110219
  Serious: Yes (Other)
  Sender: FDA-Public Use
  Company Number: GXKR2010TR09318

PATIENT
  Age: 8 Year
  Sex: Female

DRUGS (1)
  1. VALPROIC ACID [Suspect]
     Indication: CONVULSION
     Route: 065

REACTIONS (7)
  - CHOLESTASIS [None]
  - HEPATOMEGALY [None]
  - JAUNDICE [None]
  - PRURITUS [None]
  - SPLENOMEGALY [None]
  - VANISHING BILE DUCT SYNDROME [None]
  - XANTHOMA [None]
